FAERS Safety Report 4955544-0 (Version None)
Quarter: 2006Q1

REPORT INFORMATION
  Report Type: 
  Country: None (occurrence: None)
  Receive Date: 20060131
  Receipt Date: 20050330
  Transmission Date: 20060701
  Serious: Yes (Life-Threatening, Hospitalization, Disabling, Other)
  Sender: FDA-Public Use
  Company Number: WAES 0503USA05284

PATIENT
  Sex: Male

DRUGS (1)
  1. PRIMAXIN [Suspect]
     Indication: MALAISE
     Dosage: 1 GM/Q8H/IV
     Route: 042
     Dates: end: 20050301

REACTIONS (1)
  - CONVULSION [None]
